FAERS Safety Report 5642242-3 (Version None)
Quarter: 2008Q1

REPORT INFORMATION
  Report Type: 
  Country: None (occurrence: None)
  Receive Date: 20080212
  Receipt Date: 20080211
  Transmission Date: 20080703
  Serious: Yes (Hospitalization)
  Sender: FDA-Public Use
  Company Number: 231480J08USA

PATIENT
  Age: 53 Year
  Sex: Female
  Weight: 89.8122 kg

DRUGS (8)
  1. REBIF [Suspect]
     Indication: MULTIPLE SCLEROSIS
     Dosage: 44 MCG, 3 IN 1 WEEKS, SUBCUTANEOUS
     Route: 058
     Dates: start: 20050104, end: 20070115
  2. LEXAPRO [Concomitant]
  3. REGLAN (METOCLOPRAMIDE /00041901/) [Concomitant]
  4. TRAZODONE HCL [Concomitant]
  5. METFORMIN (METFORMIN /00082701/) [Concomitant]
  6. STARLIX [Concomitant]
  7. PREVACID [Concomitant]
  8. SYNTHROID [Concomitant]

REACTIONS (3)
  - CONDITION AGGRAVATED [None]
  - DEPRESSION [None]
  - SUICIDAL IDEATION [None]
